FAERS Safety Report 14633212 (Version 1)
Quarter: 2018Q1

REPORT INFORMATION
  Report Type: Spontaneous
  Country: JP (occurrence: JP)
  Receive Date: 20180313
  Receipt Date: 20180313
  Transmission Date: 20180509
  Serious: Yes (Other)
  Sender: FDA-Public Use
  Company Number: JP-JAZZ-2018-JP-004125

PATIENT
  Age: 64 Year
  Sex: Male

DRUGS (1)
  1. ERWINASE [Suspect]
     Active Substance: ASPARAGINASE ERWINIA CHRYSANTHEMI
     Indication: ACUTE MYELOID LEUKAEMIA
     Dosage: 6000 IU/M2, DAYS 1-7

REACTIONS (3)
  - Febrile neutropenia [Unknown]
  - Drug ineffective [Unknown]
  - Liver injury [Unknown]
